FAERS Safety Report 9410878 (Version 1)
Quarter: 2013Q3

REPORT INFORMATION
  Report Type: Spontaneous
  Country: US (occurrence: US)
  Receive Date: 20130719
  Receipt Date: 20130719
  Transmission Date: 20140515
  Serious: Yes (Other)
  Sender: FDA-Public Use
  Company Number: CHPA2013US011062

PATIENT
  Age: 73 Year
  Sex: Female

DRUGS (8)
  1. PERDIEM OVERNIGHT RELIEF PILLS [Suspect]
     Indication: BOWEL MOVEMENT IRREGULARITY
     Dosage: 3-4 DF, PRN
     Route: 048
  2. PERDIEM OVERNIGHT RELIEF PILLS [Suspect]
     Indication: WEIGHT CONTROL
  3. PERDIEM FIBER [Suspect]
  4. EXCEDRIN EXTRA STRENGTH [Suspect]
     Indication: HEADACHE
     Dosage: 2-4 UNK, PRN
     Route: 048
  5. EXCEDRIN EXTRA STRENGTH [Suspect]
     Indication: ARTHRALGIA
  6. ADVIL//IBUPROFEN [Concomitant]
     Indication: HEADACHE
     Dosage: UNK, PRN
  7. ADVIL//IBUPROFEN [Concomitant]
     Indication: ARTHRALGIA
  8. BABY ASPIRIN [Concomitant]
     Indication: PROPHYLAXIS
     Dosage: UNK

REACTIONS (1)
  - Restless legs syndrome [Recovered/Resolved]
